FAERS Safety Report 9471549 (Version 2)
Quarter: 2013Q3

REPORT INFORMATION
  Report Type: Report from Study
  Country: BR (occurrence: BR)
  Receive Date: 20130822
  Receipt Date: 20130904
  Transmission Date: 20140515
  Serious: Yes (Other)
  Sender: FDA-Public Use
  Company Number: PHHY2013BR088960

PATIENT
  Age: 41 Year
  Sex: Male
  Weight: 94.7 kg

DRUGS (17)
  1. CICLOSPORIN [Suspect]
     Indication: IMMUNOSUPPRESSANT DRUG THERAPY
     Dosage: 250 MG, BID (6 MG/KG/DAY)
     Route: 048
     Dates: start: 20000503, end: 20010108
  2. CICLOSPORIN [Suspect]
     Dosage: 125 MG, BID (3MG/KG/DAY)
     Route: 048
     Dates: start: 20010108, end: 20030728
  3. MYCOPHENOLATE MOFETIL [Suspect]
     Indication: IMMUNOSUPPRESSANT DRUG THERAPY
     Dosage: 2 G/DAY
     Route: 048
     Dates: start: 20030728, end: 20030915
  4. MYCOPHENOLATE MOFETIL [Suspect]
     Dosage: 1.5 G/DAY
     Route: 048
     Dates: start: 20030915
  5. RAPAMYCIN [Suspect]
     Indication: IMMUNOSUPPRESSANT DRUG THERAPY
     Dosage: 2 MG, DAILY
     Route: 048
     Dates: start: 20020520, end: 20030324
  6. RAPAMYCIN [Suspect]
     Dosage: 3 MG/DAY
  7. RAPAMYCIN [Suspect]
     Dosage: 2 MG, DAILY
     Route: 048
     Dates: start: 20050921, end: 20100312
  8. PRED [Suspect]
     Indication: IMMUNOSUPPRESSANT DRUG THERAPY
     Route: 048
     Dates: start: 20000503
  9. FUROSEMIDE [Concomitant]
     Indication: HYPERTENSION
     Dosage: 40 MG, QD
     Route: 048
     Dates: start: 20051021
  10. EVEROLIMUS [Concomitant]
     Indication: IMMUNOSUPPRESSION
     Dosage: 2 MG, BID
     Route: 048
  11. CARVEDILOL [Concomitant]
     Indication: HYPERTENSION
     Dosage: 6.25 MG, BID
     Dates: start: 20120224
  12. LOSARTAN [Concomitant]
     Indication: HYPERTENSION
     Dosage: 75 MG, BID
     Route: 048
     Dates: start: 20120224
  13. METFORMIN [Concomitant]
     Indication: DIABETES MELLITUS
     Dosage: 850 MG, BID
     Route: 048
     Dates: start: 20100730
  14. ATORVASTATIN [Concomitant]
     Dosage: 40 MG, QD
     Route: 048
     Dates: start: 20070207
  15. FINASTERIDE [Concomitant]
     Indication: BENIGN PROSTATIC HYPERPLASIA
     Dosage: 5 MG, QD
     Route: 048
     Dates: start: 20130712
  16. INSULIN NPH//INSULIN ISOPHANE BOVINE [Concomitant]
     Indication: DIABETES MELLITUS
     Dosage: 24 IU, DAILY
     Route: 058
     Dates: start: 20130621
  17. ERYTHROPOIETIN [Concomitant]
     Indication: ANAEMIA
     Dosage: 4000 IU WEEKLY
     Route: 058
     Dates: start: 20111214

REACTIONS (9)
  - Thrombotic microangiopathy [Recovering/Resolving]
  - Complications of transplanted kidney [Recovering/Resolving]
  - Renal failure chronic [Recovering/Resolving]
  - Blood creatinine increased [Unknown]
  - Proteinuria [Recovering/Resolving]
  - Oedema peripheral [Recovering/Resolving]
  - Erythema [Recovering/Resolving]
  - Pain [Recovering/Resolving]
  - Arteriovenous fistula site complication [Recovering/Resolving]
